FAERS Safety Report 26156854 (Version 1)
Quarter: 2025Q4

REPORT INFORMATION
  Report Type: Spontaneous
  Country: US (occurrence: None)
  Receive Date: 20251215
  Receipt Date: 20251215
  Transmission Date: 20260117
  Serious: Yes (Hospitalization, Other)
  Sender: APOTEX
  Company Number: US-APOTEX-2025AP034011

PATIENT
  Age: 19 Year
  Sex: Female

DRUGS (1)
  1. BUPROPION [Suspect]
     Active Substance: BUPROPION
     Indication: Product used for unknown indication
     Dosage: 60 DOSAGE FORM
     Route: 061

REACTIONS (12)
  - Unresponsive to stimuli [Unknown]
  - Hallucination, visual [Unknown]
  - Apnoea [Unknown]
  - Electrocardiogram QT prolonged [Unknown]
  - Intentional overdose [Unknown]
  - Nausea [Unknown]
  - Electrocardiogram abnormal [Unknown]
  - Vomiting [Unknown]
  - Tremor [Unknown]
  - Agitation [Unknown]
  - Hypotension [Unknown]
  - Sinus tachycardia [Unknown]
